FAERS Safety Report 6992448-6 (Version None)
Quarter: 2010Q3

REPORT INFORMATION
  Report Type: 
  Country: None (occurrence: None)
  Receive Date: 20100916
  Receipt Date: 20100916
  Transmission Date: 20110219
  Serious: Yes (Other)
  Sender: FDA-Public Use
  Company Number: None

PATIENT
  Age: 75 Year
  Sex: Female
  Weight: 83.9154 kg

DRUGS (2)
  1. BENICAR [Suspect]
     Indication: HYPERTENSION
     Dosage: 1 TABLET BY MOUTH AT BEDTIME SL
     Route: 060
     Dates: start: 20100110, end: 20100115
  2. BENICAR [Suspect]
     Indication: DIABETES MELLITUS
     Dates: start: 20100630, end: 20100707

REACTIONS (5)
  - DYSURIA [None]
  - FEELING ABNORMAL [None]
  - GENERALISED OEDEMA [None]
  - URINARY INCONTINENCE [None]
  - URINARY TRACT INFECTION [None]
